FAERS Safety Report 17855436 (Version 1)
Quarter: 2020Q2

REPORT INFORMATION
  Report Type: Spontaneous
  Country: CH (occurrence: CH)
  Receive Date: 20200603
  Receipt Date: 20200603
  Transmission Date: 20200714
  Serious: Yes (Hospitalization)
  Sender: FDA-Public Use
  Company Number: CH-ASTRAZENECA-2020SE69851

PATIENT
  Age: 32906 Day
  Sex: Female

DRUGS (2)
  1. NITROFURANTOINE [Concomitant]
     Active Substance: NITROFURANTOIN
     Dates: start: 20200518
  2. XIGDUO XR [Suspect]
     Active Substance: DAPAGLIFLOZIN PROPANEDIOL\METFORMIN HYDROCHLORIDE
     Dosage: 1.0DF UNKNOWN
     Route: 048
     Dates: start: 202004

REACTIONS (1)
  - Ketoacidosis [Recovered/Resolved]

NARRATIVE: CASE EVENT DATE: 20200512
